FAERS Safety Report 6672994-5 (Version None)
Quarter: 2010Q2

REPORT INFORMATION
  Report Type: 
  Country: None (occurrence: None)
  Receive Date: 20100408
  Receipt Date: 20100331
  Transmission Date: 20101027
  Serious: Yes (Hospitalization)
  Sender: FDA-Public Use
  Company Number: B0639677A

PATIENT
  Sex: Female

DRUGS (5)
  1. ZOVIRAX [Suspect]
     Indication: DRUG USE FOR UNKNOWN INDICATION
     Route: 042
     Dates: start: 20091226
  2. VICCLOX [Concomitant]
     Dosage: 750MG PER DAY
     Route: 042
     Dates: start: 20091226, end: 20100125
  3. SANDIMMUNE [Concomitant]
     Indication: PROPHYLAXIS
     Dosage: 120MG PER DAY
     Route: 042
     Dates: start: 20091221, end: 20100123
  4. MEROPEN [Concomitant]
     Indication: INFECTION
     Dosage: 2G PER DAY
     Route: 042
     Dates: start: 20091221, end: 20100223
  5. AMBISOME [Concomitant]
     Indication: INFECTION
     Route: 042
     Dates: start: 20091128, end: 20100305

REACTIONS (1)
  - PERSONALITY CHANGE [None]
